FAERS Safety Report 6196072-7 (Version None)
Quarter: 2009Q2

REPORT INFORMATION
  Report Type: 
  Country: None (occurrence: None)
  Receive Date: 20090520
  Receipt Date: 20080721
  Transmission Date: 20091009
  Serious: Yes (Hospitalization)
  Sender: FDA-Public Use
  Company Number: NL-ROCHE-606482

PATIENT
  Sex: Male

DRUGS (3)
  1. CAPECITABINE [Suspect]
     Route: 065
     Dates: start: 20031126, end: 20040127
  2. IRINOTECAN HCL [Suspect]
     Dosage: SECOND LINE
     Route: 042
     Dates: start: 20040204, end: 20040407
  3. SERETIDE [Concomitant]
     Indication: ASBESTOSIS

REACTIONS (1)
  - CHOLINERGIC SYNDROME [None]
